FAERS Safety Report 5372376-2 (Version None)
Quarter: 2007Q2

REPORT INFORMATION
  Report Type: 
  Country: None (occurrence: None)
  Receive Date: 20070615
  Receipt Date: 20061219
  Transmission Date: 20071010
  Serious: Yes (Other)
  Sender: FDA-Public Use
  Company Number: 200616903US

PATIENT
  Age: 60 Year
  Sex: Male

DRUGS (10)
  1. LANTUS [Suspect]
     Indication: DIABETES MELLITUS NON-INSULIN-DEPENDENT
     Dosage: 20 U
  2. OPTICLIK [Suspect]
  3. HUMALOG [Concomitant]
  4. METFORMIN HYDROCHLORIDE [Concomitant]
  5. ATENOLOL [Concomitant]
  6. CLOPIDOGREL (PLAVIX /01220701/) [Concomitant]
  7. LOVASTATIN [Concomitant]
  8. ASPIRIN [Concomitant]
  9. FISH OIL [Concomitant]
  10. PAROXETINE HYDROCHLORIDE (SEROXAT) [Concomitant]

REACTIONS (5)
  - BLOOD GLUCOSE DECREASED [None]
  - BLOOD GLUCOSE INCREASED [None]
  - GLYCOSYLATED HAEMOGLOBIN INCREASED [None]
  - HYPERGLYCAEMIA [None]
  - INJECTION SITE BRUISING [None]
